FAERS Safety Report 11450037 (Version 1)
Quarter: 2015Q3

REPORT INFORMATION
  Report Type: Spontaneous
  Country: US (occurrence: US)
  Receive Date: 20150903
  Receipt Date: 20150903
  Transmission Date: 20151125
  Serious: No
  Sender: FDA-Public Use
  Company Number: US-ROCHE-1056486

PATIENT
  Age: 52 Year
  Sex: Female

DRUGS (4)
  1. RIBAVIRIN. [Suspect]
     Active Substance: RIBAVIRIN
     Indication: CHRONIC HEPATITIS C
     Dosage: DAILY DIVIDED DOSES, MANUFACTURER: ZYGENERICS
     Route: 048
     Dates: start: 20120401
  2. PHENERGAN [Concomitant]
     Active Substance: PROMETHAZINE HYDROCHLORIDE
  3. LOMOTIL [Concomitant]
     Active Substance: ATROPINE SULFATE\DIPHENOXYLATE HYDROCHLORIDE
  4. PEGASYS [Suspect]
     Active Substance: PEGINTERFERON ALFA-2A
     Indication: CHRONIC HEPATITIS C
     Route: 058
     Dates: start: 20120401

REACTIONS (13)
  - Pyrexia [Unknown]
  - Dyspepsia [Unknown]
  - Drug administration error [Unknown]
  - No adverse event [Unknown]
  - Nausea [Unknown]
  - Influenza like illness [Unknown]
  - Thirst [Unknown]
  - Fatigue [Recovering/Resolving]
  - Restless legs syndrome [Unknown]
  - Back pain [Unknown]
  - Exposure via direct contact [Unknown]
  - Dysgeusia [Unknown]
  - Nasal congestion [Unknown]

NARRATIVE: CASE EVENT DATE: 20120405
